FAERS Safety Report 10341560 (Version 1)
Quarter: 2014Q3

REPORT INFORMATION
  Report Type: Spontaneous
  Country: US (occurrence: None)
  Receive Date: 20140724
  Receipt Date: 20140724
  Transmission Date: 20150326
  Serious: Yes (Death)
  Sender: FDA-Public Use
  Company Number: None

PATIENT
  Age: 61 Year
  Sex: Male
  Weight: 45.9 kg

DRUGS (2)
  1. CARBOPLATIN. [Suspect]
     Active Substance: CARBOPLATIN
     Indication: OESOPHAGEAL CARCINOMA
     Route: 042
     Dates: start: 20140609, end: 20140714
  2. EVEROLIMUS [Suspect]
     Active Substance: EVEROLIMUS
     Indication: OESOPHAGEAL CARCINOMA
     Route: 048
     Dates: start: 20140609, end: 20140717

REACTIONS (1)
  - Small intestinal perforation [None]

NARRATIVE: CASE EVENT DATE: 20140721
